FAERS Safety Report 19707959 (Version 1)
Quarter: 2021Q3

REPORT INFORMATION
  Report Type: Spontaneous
  Country: US (occurrence: US)
  Receive Date: 20210817
  Receipt Date: 20210817
  Transmission Date: 20211014
  Serious: No
  Sender: FDA-Public Use
  Company Number: US-SPECGX-T202101221

PATIENT
  Age: 65 Year
  Sex: Male
  Weight: 93 kg

DRUGS (4)
  1. PIFELTRO [Concomitant]
     Active Substance: DORAVIRINE
     Indication: HIV INFECTION
     Dosage: 100 MILLIGRAM, QD
     Route: 065
  2. OXYCODONE/ACETAMINOPHEN [Suspect]
     Active Substance: ACETAMINOPHEN\OXYCODONE HYDROCHLORIDE
     Indication: SPINAL DISORDER
     Dosage: UNK (TWICE A DAY (MORNING AND EVENING) ALLOWED TO TAKE UP TO THREE TIMES A DAY)
     Route: 048
     Dates: start: 202007
  3. OXYCODONE/ACETAMINOPHEN [Suspect]
     Active Substance: ACETAMINOPHEN\OXYCODONE HYDROCHLORIDE
     Indication: LIMB DISCOMFORT
     Dosage: UNK (TWICE A DAY (MORNING AND EVENING) ALLOWED TO TAKE UP TO THREE TIMES A DAY)
     Route: 048
     Dates: start: 20210506
  4. DOVATO [Concomitant]
     Active Substance: DOLUTEGRAVIR SODIUM\LAMIVUDINE
     Indication: HIV INFECTION
     Dosage: 300 MILLIGRAM, QD
     Route: 065

REACTIONS (5)
  - Feeling abnormal [Unknown]
  - Vision blurred [Unknown]
  - Nausea [Unknown]
  - Dizziness [Unknown]
  - Drug ineffective [Unknown]

NARRATIVE: CASE EVENT DATE: 20210506
